FAERS Safety Report 8900737 (Version 1)
Quarter: 2012Q4

REPORT INFORMATION
  Report Type: 
  Country: CA (occurrence: CA)
  Receive Date: 20121109
  Receipt Date: 20121109
  Transmission Date: 20130627
  Serious: Yes (Death, Hospitalization)
  Sender: FDA-Public Use
  Company Number: PHHY2008CA14193

PATIENT
  Sex: Female

DRUGS (3)
  1. SANDOSTATIN LAR [Suspect]
     Indication: CARCINOID TUMOUR
     Dosage: 30 mg, QMO
     Route: 030
     Dates: start: 20061001, end: 20081002
  2. APO-NORFLOX [Concomitant]
     Indication: CYSTITIS
     Dosage: 400 mg, BID
     Dates: start: 20080609
  3. IMODIUM [Concomitant]

REACTIONS (11)
  - Death [Fatal]
  - Weight decreased [Unknown]
  - Localised oedema [Unknown]
  - Oedema peripheral [Unknown]
  - Cystitis [Unknown]
  - Flushing [Unknown]
  - Wheezing [Unknown]
  - Decreased appetite [Unknown]
  - Fatigue [Unknown]
  - Asthenia [Unknown]
  - Diarrhoea [Unknown]
